FAERS Safety Report 8059556-2 (Version None)
Quarter: 2012Q1

REPORT INFORMATION
  Report Type: 
  Country: None (occurrence: None)
  Receive Date: 20120120
  Receipt Date: 20120109
  Transmission Date: 20120608
  Serious: Yes (Hospitalization)
  Sender: FDA-Public Use
  Company Number: FR-SANOFI-AVENTIS-2012SA001332

PATIENT
  Age: 65 Year
  Sex: Female
  Weight: 67 kg

DRUGS (3)
  1. GEMZAR [Suspect]
     Dosage: 71.4286 MG/M2.
     Route: 042
     Dates: start: 20111006, end: 20111020
  2. ELOXATIN [Suspect]
     Dosage: 6.0714 MG/M2.
     Route: 042
     Dates: start: 20111006, end: 20111020
  3. AVASTIN [Suspect]
     Dosage: 0.3571 MG/KG.
     Route: 042
     Dates: start: 20111006, end: 20111020

REACTIONS (3)
  - ASTHENIA [None]
  - DROP ATTACKS [None]
  - NUCLEAR MAGNETIC RESONANCE IMAGING BRAIN ABNORMAL [None]
